FAERS Safety Report 24897792 (Version 1)
Quarter: 2025Q1

REPORT INFORMATION
  Report Type: Spontaneous
  Country: FR (occurrence: FR)
  Receive Date: 20250129
  Receipt Date: 20250129
  Transmission Date: 20250409
  Serious: Yes (Death, Other)
  Sender: CELLTRION
  Company Number: FR-SEATTLE GENETICS-2021SGN01664

PATIENT

DRUGS (3)
  1. TRASTUZUMAB [Suspect]
     Active Substance: TRASTUZUMAB
     Indication: HER2 positive breast cancer
     Route: 058
     Dates: start: 20201126, end: 20210218
  2. TUCATINIB [Suspect]
     Active Substance: TUCATINIB
     Indication: Product used for unknown indication
     Route: 048
     Dates: start: 20201126, end: 20210303
  3. CAPECITABINE [Suspect]
     Active Substance: CAPECITABINE
     Indication: HER2 positive breast cancer
     Route: 048
     Dates: start: 20201126, end: 20210303

REACTIONS (3)
  - Epilepsy [Fatal]
  - Disease progression [Fatal]
  - Intentional product use issue [Unknown]

NARRATIVE: CASE EVENT DATE: 20210310
